FAERS Safety Report 13072139 (Version 4)
Quarter: 2017Q1

REPORT INFORMATION
  Report Type: Spontaneous
  Country: US (occurrence: US)
  Receive Date: 20161229
  Receipt Date: 20170313
  Transmission Date: 20170428
  Serious: Yes (Hospitalization, Disabling)
  Sender: FDA-Public Use
  Company Number: US-CELGENEUS-USA-2016126897

PATIENT
  Age: 66 Year
  Sex: Female

DRUGS (2)
  1. REVLIMID [Suspect]
     Active Substance: LENALIDOMIDE
     Indication: PLASMA CELL MYELOMA
     Dosage: 25 MG
     Route: 048
     Dates: start: 201510
  2. REVLIMID [Suspect]
     Active Substance: LENALIDOMIDE
     Dosage: 15 MG
     Route: 048
     Dates: start: 201702

REACTIONS (12)
  - Fatigue [Unknown]
  - Dyspnoea [Recovered/Resolved]
  - Abdominal distension [Unknown]
  - Nausea [Unknown]
  - Pneumonia [Recovered/Resolved]
  - Pulmonary embolism [Unknown]
  - Asthma [Unknown]
  - Lung disorder [Unknown]
  - Embolism [Recovered/Resolved]
  - Bronchitis [Unknown]
  - Vertigo [Unknown]
  - Drug intolerance [Unknown]

NARRATIVE: CASE EVENT DATE: 20160901
